FAERS Safety Report 7736363-9 (Version None)
Quarter: 2011Q3

REPORT INFORMATION
  Report Type: 
  Country: None (occurrence: None)
  Receive Date: 20110908
  Receipt Date: 20110203
  Transmission Date: 20111222
  Serious: No
  Sender: FDA-Public Use
  Company Number: US-BAYER-2011-012581

PATIENT
  Age: 32 Year
  Sex: Female

DRUGS (2)
  1. MIRENA [Suspect]
     Indication: CONTRACEPTION
     Dosage: FIRST MIRENA: 20 MCG/24HR, CONT
     Route: 015
  2. MIRENA [Suspect]
     Dosage: SECOND MIRENA: 20 MCG/24HR, CONT
     Route: 015
     Dates: start: 20101201

REACTIONS (1)
  - VAGINAL INFECTION [None]
